FAERS Safety Report 7425478-0 (Version None)
Quarter: 2011Q2

REPORT INFORMATION
  Report Type: 
  Country: None (occurrence: None)
  Receive Date: 20110420
  Receipt Date: 20110406
  Transmission Date: 20111010
  Serious: Yes (Hospitalization)
  Sender: FDA-Public Use
  Company Number: GR-SANOFI-AVENTIS-2011SA020756

PATIENT
  Sex: Female
  Weight: 95 kg

DRUGS (1)
  1. ARAVA [Suspect]
     Dosage: START DATE: SINCE SEVEN YEARS
     Route: 065
     Dates: start: 20040101

REACTIONS (1)
  - RHEUMATOID ARTHRITIS [None]
